FAERS Safety Report 14659245 (Version 1)
Quarter: 2018Q1

REPORT INFORMATION
  Report Type: Spontaneous
  Country: FR (occurrence: FR)
  Receive Date: 20180320
  Receipt Date: 20180320
  Transmission Date: 20180509
  Serious: Yes (Other)
  Sender: FDA-Public Use
  Company Number: FR-TEVA-2018-FR-871511

PATIENT
  Age: 27 Year
  Sex: Male

DRUGS (4)
  1. NATULAN [Suspect]
     Active Substance: PROCARBAZINE HYDROCHLORIDE
     Indication: GLIOMA
     Dosage: CF. COMMENTS
     Route: 048
  2. BELUSTINE [Suspect]
     Active Substance: LOMUSTINE
     Indication: GLIOMA
     Dosage: CF COMMENTS
     Route: 048
  3. VINCRISTINE [Suspect]
     Active Substance: VINCRISTINE
     Indication: GLIOMA
     Dosage: CF. COMMENTS
     Route: 041
  4. BACTRIM [Suspect]
     Active Substance: SULFAMETHOXAZOLE\TRIMETHOPRIM
     Indication: PROPHYLAXIS
     Route: 048

REACTIONS (1)
  - Hepatitis acute [Not Recovered/Not Resolved]
